FAERS Safety Report 15751685 (Version 1)
Quarter: 2018Q4

REPORT INFORMATION
  Report Type: Spontaneous
  Country: US (occurrence: US)
  Receive Date: 20181221
  Receipt Date: 20181221
  Transmission Date: 20190205
  Serious: No
  Sender: FDA-Public Use
  Company Number: US-JNJFOC-20181210058

PATIENT
  Age: 69 Year
  Sex: Female

DRUGS (2)
  1. AVASTIN [Concomitant]
     Active Substance: BEVACIZUMAB
     Route: 065
  2. DARZALEX [Suspect]
     Active Substance: DARATUMUMAB
     Indication: PRODUCT USED FOR UNKNOWN INDICATION
     Dosage: (3 OF 400 MG VIALS) (1 OF 400 MG VIALS) AND 2 0F 100 MG VIALS)
     Route: 065

REACTIONS (1)
  - Blood test abnormal [Unknown]

NARRATIVE: CASE EVENT DATE: 20181204
